FAERS Safety Report 4615980-9 (Version None)
Quarter: 2005Q1

REPORT INFORMATION
  Report Type: 
  Country: None (occurrence: None)
  Receive Date: 20050318
  Receipt Date: 20050307
  Transmission Date: 20050727
  Serious: Yes (Hospitalization)
  Sender: FDA-Public Use
  Company Number: 2005039267

PATIENT
  Sex: Female

DRUGS (3)
  1. AROMASIN [Suspect]
     Indication: BREAST CANCER
     Dosage: 25 MG (25 MG, QD), ORAL
     Route: 048
     Dates: start: 20050125, end: 20050218
  2. CYCLOPHOSPHAMIDE [Concomitant]
  3. DOXIFLURIDINE (DOXIFLURIDINE) [Concomitant]

REACTIONS (1)
  - HERPES ZOSTER [None]
